FAERS Safety Report 24194687 (Version 1)
Quarter: 2024Q3

REPORT INFORMATION
  Report Type: Other
  Country: IN (occurrence: IN)
  Receive Date: 20240809
  Receipt Date: 20240809
  Transmission Date: 20241017
  Serious: Yes (Hospitalization, Other)
  Sender: B BRAUN
  Company Number: IN-B.Braun Medical Inc.-2160241

PATIENT
  Age: 61 Year
  Sex: Male

DRUGS (1)
  1. METRONIDAZOLE [Suspect]
     Active Substance: METRONIDAZOLE
     Indication: Liver abscess

REACTIONS (5)
  - Acute motor axonal neuropathy [Unknown]
  - Drug ineffective for unapproved indication [Unknown]
  - Encephalopathy [Unknown]
  - Polyradiculoneuropathy [Unknown]
  - Nerve compression [Unknown]
